FAERS Safety Report 23084701 (Version 5)
Quarter: 2023Q4

REPORT INFORMATION
  Report Type: Report from Study
  Country: ES (occurrence: ES)
  Receive Date: 20231019
  Receipt Date: 20231204
  Transmission Date: 20240110
  Serious: Yes (Other)
  Sender: FDA-Public Use
  Company Number: ES-PFIZER INC-PV202300172456

PATIENT
  Age: 71 Year
  Sex: Male
  Weight: 91.8 kg

DRUGS (10)
  1. TALAZOPARIB [Suspect]
     Active Substance: TALAZOPARIB
     Indication: Prostate cancer
     Dosage: 0.35 MG, DAILY
     Route: 048
     Dates: start: 20210208, end: 20210530
  2. TALAZOPARIB [Suspect]
     Active Substance: TALAZOPARIB
     Dosage: 0.25 MG, DAILY
     Route: 048
     Dates: start: 20210531, end: 20230821
  3. TALAZOPARIB [Suspect]
     Active Substance: TALAZOPARIB
     Dosage: 0.1 MG, DAILY
     Route: 048
     Dates: start: 20230918, end: 20231015
  4. ENZALUTAMIDE [Suspect]
     Active Substance: ENZALUTAMIDE
     Indication: Prostate cancer
     Dosage: 160 MG, DAILY
     Route: 048
     Dates: start: 20201214, end: 20231104
  5. LEUPROLIDE ACETATE [Concomitant]
     Active Substance: LEUPROLIDE ACETATE
     Indication: Androgen therapy
     Dosage: 45 MG EVERY 6 MONTHS
     Route: 042
     Dates: start: 20201210
  6. BISOPROLOL [Concomitant]
     Active Substance: BISOPROLOL\BISOPROLOL FUMARATE
     Indication: Ventricular extrasystoles
     Dosage: 2.5 MG, DAILY
     Route: 048
     Dates: start: 20210323
  7. AMLODIPINE [Concomitant]
     Active Substance: AMLODIPINE BESYLATE
     Indication: Hypertension
     Dosage: 10 MG, DAILY
     Route: 048
     Dates: start: 20210504
  8. DENOSUMAB [Concomitant]
     Active Substance: DENOSUMAB
     Indication: Osteoporosis
     Dosage: 60 MG EVERY 6 MONTHS
     Route: 042
     Dates: start: 20220214
  9. DESVENLAFAXINE [Concomitant]
     Active Substance: DESVENLAFAXINE
     Indication: Depression
     Dosage: 50 MG, DAILY
     Route: 048
     Dates: start: 20220609
  10. CALCIFEDIOL [Concomitant]
     Active Substance: CALCIFEDIOL
     Indication: Osteoporosis
     Dosage: 0.266 MG, MONTHLY
     Route: 048
     Dates: start: 20230529

REACTIONS (1)
  - Haematotoxicity [Not Recovered/Not Resolved]

NARRATIVE: CASE EVENT DATE: 20231013
